FAERS Safety Report 9732134 (Version 2)
Quarter: 2014Q1

REPORT INFORMATION
  Report Type: Spontaneous
  Country: JP (occurrence: JP)
  Receive Date: 20131205
  Receipt Date: 20140106
  Transmission Date: 20141002
  Serious: Yes (Other)
  Sender: FDA-Public Use
  Company Number: JP-ASTELLAS-2013US012544

PATIENT
  Age: 66 Year
  Sex: Female

DRUGS (10)
  1. TARCEVA [Suspect]
     Indication: LUNG ADENOCARCINOMA
     Dosage: 150 MG, UID/QD
     Route: 048
     Dates: start: 20130813, end: 20131027
  2. TARCEVA [Suspect]
     Dosage: 50 MG, UID/QD
     Route: 048
     Dates: start: 20131116, end: 20131206
  3. TARCEVA [Suspect]
     Dosage: 100 MG, UID/QD
     Route: 048
     Dates: start: 20131207
  4. AMLODIPINE [Concomitant]
     Indication: HYPERTENSION
     Dosage: 2.5 MG, UID/QD
     Route: 048
     Dates: start: 20130814
  5. LOCOID [Concomitant]
     Indication: ECZEMA
     Dosage: UNK
     Route: 003
     Dates: start: 20130819
  6. MYSER                              /01249201/ [Concomitant]
     Indication: ECZEMA
     Dosage: UNK
     Route: 003
     Dates: start: 20130819
  7. BIO THREE                          /01960101/ [Concomitant]
     Indication: DIARRHOEA
     Dosage: 1 G, TID
     Route: 048
     Dates: start: 20130822, end: 20131206
  8. MINOMYCIN [Concomitant]
     Indication: ECZEMA
     Dosage: 50 MG, BID
     Route: 048
     Dates: start: 20130921, end: 20131028
  9. MERISLON [Concomitant]
     Indication: DIZZINESS
     Dosage: 6 MG, TID
     Route: 048
     Dates: start: 20131022, end: 20131024
  10. MAOTO [Concomitant]
     Indication: PRODUCT USED FOR UNKNOWN INDICATION
     Dosage: UNK
     Route: 065

REACTIONS (1)
  - Henoch-Schonlein purpura [Recovering/Resolving]
